FAERS Safety Report 25152778 (Version 2)
Quarter: 2025Q2

REPORT INFORMATION
  Report Type: Spontaneous
  Country: JP (occurrence: JP)
  Receive Date: 20250403
  Receipt Date: 20250512
  Transmission Date: 20250716
  Serious: Yes (Other)
  Sender: GLAXOSMITHKLINE
  Company Number: JP-GSKJP-JP2025JPN037401AA

PATIENT

DRUGS (1)
  1. DAPRODUSTAT [Suspect]
     Active Substance: DAPRODUSTAT
     Indication: Nephrogenic anaemia

REACTIONS (3)
  - Macular oedema [Unknown]
  - Age-related macular degeneration [Unknown]
  - Visual acuity reduced [Unknown]
